FAERS Safety Report 18493237 (Version 9)
Quarter: 2021Q3

REPORT INFORMATION
  Report Type: Report from Study
  Country: US (occurrence: US)
  Receive Date: 20201111
  Receipt Date: 20210924
  Transmission Date: 20211014
  Serious: Yes (Hospitalization, Other)
  Sender: FDA-Public Use
  Company Number: US-TAKEDA-2020TUS045689

PATIENT
  Age: 69 Year
  Sex: Female
  Weight: 50.79 kg

DRUGS (12)
  1. KLONOPIN [Concomitant]
     Active Substance: CLONAZEPAM
     Route: 065
  2. ACETAMINOPHEN. [Concomitant]
     Active Substance: ACETAMINOPHEN
     Route: 065
  3. PROLIA [Concomitant]
     Active Substance: DENOSUMAB
     Route: 065
  4. TAGAMET [Concomitant]
     Active Substance: CIMETIDINE
     Route: 065
  5. RIBOXIN [RIBOFLAVIN] [Concomitant]
     Route: 065
  6. DIPHENHYDRAMINE. [Concomitant]
     Active Substance: DIPHENHYDRAMINE
     Route: 065
  7. ZOFRAN [Concomitant]
     Active Substance: ONDANSETRON HYDROCHLORIDE
     Route: 065
  8. CUVITRU [Suspect]
     Active Substance: HUMAN IMMUNOGLOBULIN G
     Indication: IMMUNODEFICIENCY COMMON VARIABLE
     Dosage: 5 GRAM, 1/WEEK
     Route: 058
     Dates: start: 20201006
  9. FIORICET [Concomitant]
     Active Substance: ACETAMINOPHEN\BUTALBITAL\CAFFEINE
     Route: 065
  10. EPINEPHRINE. [Concomitant]
     Active Substance: EPINEPHRINE
     Route: 065
  11. LMX4 [Concomitant]
     Active Substance: LIDOCAINE
     Route: 065
  12. INVEGA [Concomitant]
     Active Substance: PALIPERIDONE
     Route: 065

REACTIONS (22)
  - Pulmonary arterial hypertension [Unknown]
  - Chills [Unknown]
  - Infusion related reaction [Unknown]
  - Swelling [Unknown]
  - Product dose omission issue [Unknown]
  - Chest discomfort [Unknown]
  - Sinusitis [Unknown]
  - Bronchiectasis [Unknown]
  - Cardiac valve disease [Unknown]
  - Blood pressure decreased [Unknown]
  - COVID-19 [Unknown]
  - Migraine [Unknown]
  - Sputum discoloured [Unknown]
  - Productive cough [Unknown]
  - Pruritus [Unknown]
  - Spinal operation [Unknown]
  - Fine motor skill dysfunction [Unknown]
  - Bronchitis [Unknown]
  - Erythema [Unknown]
  - Rash [Unknown]
  - Dyspnoea [Unknown]
  - Limb discomfort [Unknown]

NARRATIVE: CASE EVENT DATE: 20210401
